FAERS Safety Report 25213033 (Version 1)
Quarter: 2025Q2

REPORT INFORMATION
  Report Type: Spontaneous
  Country: US (occurrence: US)
  Receive Date: 20250418
  Receipt Date: 20250418
  Transmission Date: 20250717
  Serious: Yes (Other)
  Sender: DR REDDYS
  Company Number: US-DRL-USA-USA/2025/04/005578

PATIENT
  Age: 17 Year
  Sex: Female

DRUGS (1)
  1. IMATINIB [Suspect]
     Active Substance: IMATINIB
     Indication: Chronic myeloid leukaemia
     Dosage: AT THE AGE OF 2. SINCE DIAGNOSIS, SHE HAD BEEN RECEIVING IMATINIB THERAPY AT A DOSE OF 400MG DAILY

REACTIONS (1)
  - Atypical femur fracture [Recovering/Resolving]
